FAERS Safety Report 13578009 (Version 1)
Quarter: 2017Q2

REPORT INFORMATION
  Report Type: Spontaneous
  Country: US (occurrence: US)
  Receive Date: 20170524
  Receipt Date: 20170524
  Transmission Date: 20170830
  Serious: No
  Sender: FDA-Public Use
  Company Number: US-BAYER-2017-087303

PATIENT
  Age: 78 Year
  Sex: Female
  Weight: 61 kg

DRUGS (2)
  1. MIRALAX [Suspect]
     Active Substance: POLYETHYLENE GLYCOL 3350
     Indication: GASTROINTESTINAL DISORDER
     Dosage: UNK, PRN
     Route: 048
  2. OXYCODONE [Concomitant]
     Active Substance: OXYCODONE

REACTIONS (5)
  - Product use in unapproved indication [Unknown]
  - Circumstance or information capable of leading to medication error [Unknown]
  - Off label use [Unknown]
  - Incorrect dosage administered [Unknown]
  - Product use issue [Unknown]
